FAERS Safety Report 23443891 (Version 1)
Quarter: 2024Q1

REPORT INFORMATION
  Report Type: Spontaneous
  Country: ZA (occurrence: ZA)
  Receive Date: 20240125
  Receipt Date: 20240125
  Transmission Date: 20240409
  Serious: Yes (Hospitalization, Other)
  Sender: FDA-Public Use
  Company Number: ZA-PFIZER INC-PV202400010259

PATIENT
  Age: 67 Year
  Sex: Female
  Weight: 67.7 kg

DRUGS (4)
  1. METHOTREXATE SODIUM [Suspect]
     Active Substance: METHOTREXATE SODIUM
     Dosage: 17.5 MG, WEEKLY
     Dates: start: 202001, end: 202206
  2. SULFASALAZINE [Concomitant]
     Active Substance: SULFASALAZINE
     Dosage: 1 G, 2X/DAY
     Dates: start: 202005, end: 202007
  3. LEFLUNOMIDE [Concomitant]
     Active Substance: LEFLUNOMIDE
     Dosage: 20 MG, 5X WEEK
     Dates: start: 202007
  4. HUMIRA [Concomitant]
     Active Substance: ADALIMUMAB
     Dosage: 40 MG, FORTNIGHTLY
     Dates: start: 202111, end: 202206

REACTIONS (6)
  - Cardiac failure [Unknown]
  - Dilated cardiomyopathy [Unknown]
  - Renal function test abnormal [Unknown]
  - Drug ineffective [Unknown]
  - Toxicity to various agents [Unknown]
  - Liver function test abnormal [Unknown]

NARRATIVE: CASE EVENT DATE: 20220601
